FAERS Safety Report 10052368 (Version 1)
Quarter: 2014Q2

REPORT INFORMATION
  Report Type: Report from Study
  Country: CA (occurrence: CA)
  Receive Date: 20140402
  Receipt Date: 20140402
  Transmission Date: 20141212
  Serious: Yes (Other)
  Sender: FDA-Public Use
  Company Number: CA-JNJFOC-20140317381

PATIENT
  Age: 46 Year
  Sex: Female
  Weight: 76 kg

DRUGS (4)
  1. REMICADE [Suspect]
     Indication: CROHN^S DISEASE
     Route: 042
     Dates: start: 20020109
  2. ATIVAN [Concomitant]
     Route: 065
  3. OLMETEC [Concomitant]
     Route: 065
  4. NAPROXEN [Concomitant]
     Route: 065

REACTIONS (2)
  - Fistula [Not Recovered/Not Resolved]
  - Fungal infection [Not Recovered/Not Resolved]
